FAERS Safety Report 5146284-6 (Version None)
Quarter: 2006Q4

REPORT INFORMATION
  Report Type: 
  Country: None (occurrence: None)
  Receive Date: 20061102
  Receipt Date: 20061019
  Transmission Date: 20070319
  Serious: Yes (Hospitalization, Other)
  Sender: FDA-Public Use
  Company Number: 2006123225

PATIENT
  Age: 54 Year
  Sex: Female

DRUGS (11)
  1. CELEBREX [Suspect]
     Dosage: ORAL
     Route: 048
     Dates: start: 20020201, end: 20040414
  2. VIOXX [Suspect]
     Dosage: ORAL
     Route: 048
     Dates: start: 20020201, end: 20040414
  3. ALBYL-E (ACETYLSALICYLIC ACID, MAGNESIUM OXIDE) [Concomitant]
  4. SEL-ZOK (METOPROLOL SUCCINATE) [Concomitant]
  5. FUROSEMIDE [Concomitant]
  6. ZOMIG [Concomitant]
  7. SIMVASTATIN [Concomitant]
  8. PARALGIN FORTE (CODEINE PHOSHATE, PARACETAMOL) [Concomitant]
  9. DICLOFENAC SODIUM [Concomitant]
  10. MAREVAN ^NYCOMED^ (WARFARIN SODIUM) [Concomitant]
  11. CELESTON (BETAMETHASONE) [Concomitant]

REACTIONS (8)
  - ATRIAL FIBRILLATION [None]
  - DEEP VEIN THROMBOSIS [None]
  - DRUG INEFFECTIVE [None]
  - ELECTROCARDIOGRAM QT PROLONGED [None]
  - EMBOLIC STROKE [None]
  - FEAR [None]
  - LACUNAR INFARCTION [None]
  - PAIN [None]
